FAERS Safety Report 5720572-4 (Version None)
Quarter: 2008Q2

REPORT INFORMATION
  Report Type: 
  Country: None (occurrence: None)
  Receive Date: 20080428
  Receipt Date: 20080428
  Transmission Date: 20081010
  Serious: Yes (Life-Threatening, Hospitalization, Other)
  Sender: FDA-Public Use
  Company Number: None

PATIENT
  Age: 40 Year
  Sex: Male
  Weight: 108.8633 kg

DRUGS (2)
  1. VANCOMYCIN [Suspect]
     Indication: INFECTION PROPHYLAXIS
     Dosage: 250MG  1  IV DRIP
     Route: 041
     Dates: start: 20070921, end: 20070921
  2. VANCOMYCIN [Suspect]
     Indication: PREOPERATIVE CARE
     Dosage: 250MG  1  IV DRIP
     Route: 041
     Dates: start: 20070921, end: 20070921

REACTIONS (7)
  - DEAFNESS [None]
  - HYPOACUSIS [None]
  - INCORRECT DRUG ADMINISTRATION DURATION [None]
  - PHARYNGEAL OEDEMA [None]
  - RESPIRATORY DISORDER [None]
  - THROAT TIGHTNESS [None]
  - TINNITUS [None]
